FAERS Safety Report 17371129 (Version 2)
Quarter: 2020Q1

REPORT INFORMATION
  Report Type: Spontaneous
  Country: JP (occurrence: JP)
  Receive Date: 20200205
  Receipt Date: 20200317
  Transmission Date: 20200409
  Serious: Yes (Other)
  Sender: FDA-Public Use
  Company Number: JP-PFIZER INC-2020050914

PATIENT
  Age: 79 Year
  Sex: Male

DRUGS (2)
  1. MEROPENEM. [Suspect]
     Active Substance: MEROPENEM
     Indication: STREPTOCOCCAL INFECTION
     Dosage: 2 G, DAILY
  2. MEROPENEM. [Suspect]
     Active Substance: MEROPENEM
     Indication: FUSOBACTERIUM INFECTION

REACTIONS (1)
  - Renal impairment [Recovering/Resolving]
